FAERS Safety Report 13423792 (Version 1)
Quarter: 2017Q2

REPORT INFORMATION
  Report Type: Spontaneous
  Country: None (occurrence: GB)
  Receive Date: 20170410
  Receipt Date: 20170410
  Transmission Date: 20170830
  Serious: Yes (Congenital Anomaly)
  Sender: FDA-Public Use
  Company Number: GB-MEDAC PHARMA, INC.-1065221

PATIENT
  Age: 3 Month

DRUGS (3)
  1. INFLIXIMAB [Suspect]
     Active Substance: INFLIXIMAB
     Route: 064
  2. NAPROXEN. [Concomitant]
     Active Substance: NAPROXEN
     Route: 064
  3. METHOTREXATE. [Suspect]
     Active Substance: METHOTREXATE
     Route: 064

REACTIONS (2)
  - Trisomy 21 [Unknown]
  - Maternal exposure timing unspecified [Recovered/Resolved]
